FAERS Safety Report 18536249 (Version 2)
Quarter: 2020Q4

REPORT INFORMATION
  Report Type: Report from Study
  Country: None (occurrence: US)
  Receive Date: 20201124
  Receipt Date: 20201203
  Transmission Date: 20210114
  Serious: Yes (Death, Hospitalization)
  Sender: FDA-Public Use
  Company Number: US-ABBVIE-20K-163-3661363-00

PATIENT
  Age: 68 Year
  Sex: Male
  Weight: 64.92 kg

DRUGS (5)
  1. VALIUM [Concomitant]
     Active Substance: DIAZEPAM
     Indication: ANXIETY
  2. DOXEPIN [Concomitant]
     Active Substance: DOXEPIN
     Indication: FALL
  3. WARFARIN [Concomitant]
     Active Substance: WARFARIN
     Indication: PRODUCT USED FOR UNKNOWN INDICATION
  4. DUOPA [Suspect]
     Active Substance: CARBIDOPA\LEVODOPA
     Indication: PARKINSON^S DISEASE
     Route: 050
     Dates: start: 20171208
  5. DUOPA [Suspect]
     Active Substance: CARBIDOPA\LEVODOPA
     Dosage: DOSAGE DECREASED
     Route: 050
     Dates: end: 20201119

REACTIONS (9)
  - International normalised ratio abnormal [Unknown]
  - Device kink [Recovered/Resolved]
  - Cholelithiasis [Unknown]
  - Fall [Recovered/Resolved]
  - Pneumonia [Fatal]
  - Blood pressure decreased [Unknown]
  - Pancreatic carcinoma stage IV [Fatal]
  - Dysphagia [Unknown]
  - Asthenia [Not Recovered/Not Resolved]

NARRATIVE: CASE EVENT DATE: 2017
